FAERS Safety Report 23362817 (Version 1)
Quarter: 2024Q1

REPORT INFORMATION
  Report Type: Spontaneous
  Country: US (occurrence: US)
  Receive Date: 20240103
  Receipt Date: 20240103
  Transmission Date: 20240409
  Serious: Yes (Other)
  Sender: FDA-Public Use
  Company Number: US-Stemline Therapeutics, Inc.-2023ST004320

PATIENT
  Age: 61 Year
  Sex: Female

DRUGS (2)
  1. ORSERDU [Suspect]
     Active Substance: ELACESTRANT
     Indication: Product used for unknown indication
     Route: 048
     Dates: start: 20231017
  2. ORSERDU [Suspect]
     Active Substance: ELACESTRANT
     Route: 048
     Dates: start: 20231114

REACTIONS (12)
  - Urinary retention [Unknown]
  - Gastrointestinal wall thickening [Unknown]
  - Adverse event [Unknown]
  - Abdominal discomfort [Unknown]
  - Discomfort [Unknown]
  - Asthenia [Recovered/Resolved]
  - Musculoskeletal pain [Unknown]
  - Fatigue [Recovered/Resolved]
  - Nausea [Unknown]
  - Vomiting [Unknown]
  - Decreased appetite [Unknown]
  - Diarrhoea [Unknown]

NARRATIVE: CASE EVENT DATE: 20231019
